FAERS Safety Report 26148001 (Version 1)
Quarter: 2025Q4

REPORT INFORMATION
  Report Type: Spontaneous
  Country: EU (occurrence: EU)
  Receive Date: 20251212
  Receipt Date: 20251212
  Transmission Date: 20260118
  Serious: Yes (Other)
  Sender: ACCORD
  Company Number: None

PATIENT
  Age: 14 Year
  Sex: Female

DRUGS (10)
  1. BUPROPION HYDROCHLORIDE [Suspect]
     Active Substance: BUPROPION HYDROCHLORIDE
     Indication: Depression
     Dosage: 150 MG 1X DAY
     Dates: start: 20250301, end: 202504
  2. QUETIAPINE [Concomitant]
     Active Substance: QUETIAPINE
     Dosage: TABLET FO 25 MG
  3. OXAZEPAM [Concomitant]
     Active Substance: OXAZEPAM
     Dosage: TABLET, 10 MG (MILLIGRAM)
  4. MIDAZOLAM [Concomitant]
     Active Substance: MIDAZOLAM
     Dosage: NASAL SPRAY, 2.5 MG/DOSE
  5. FLUOXETINE [Concomitant]
     Active Substance: FLUOXETINE HYDROCHLORIDE
     Dosage: TABLET, 20 MG (MILLIGRAM)
  6. RIZATRIPTAN [Concomitant]
     Active Substance: RIZATRIPTAN
     Dosage: ORODISPERSIBLE TABLET, 10 MG
  7. ETHINYL ESTRADIOL\LEVONORGESTREL [Concomitant]
     Active Substance: ETHINYL ESTRADIOL\LEVONORGESTREL
     Dosage: TABLET, 30/150 MICROGRAM
  8. FLUTICASONE FUROATE\VILANTEROL TRIFENATATE [Concomitant]
     Active Substance: FLUTICASONE FUROATE\VILANTEROL TRIFENATATE
     Dosage: POWDER FOR INHALATION, 92/22 MICROGRAM PER DOSE
  9. DESLORATADINE [Concomitant]
     Active Substance: DESLORATADINE
     Dosage: TABLET, 5 MG
  10. BUPROPION HYDROCHLORIDE [Suspect]
     Active Substance: BUPROPION HYDROCHLORIDE
     Indication: Depression
     Dosage: 300 MG 1X DAY
     Dates: start: 202504, end: 202505

REACTIONS (1)
  - Epilepsy [Unknown]
